FAERS Safety Report 24692634 (Version 1)
Quarter: 2024Q4

REPORT INFORMATION
  Report Type: Spontaneous
  Country: CN (occurrence: CN)
  Receive Date: 20241203
  Receipt Date: 20241203
  Transmission Date: 20250115
  Serious: Yes (Other)
  Sender: FRESENIUS KABI
  Company Number: CN-FreseniusKabi-FK202417820

PATIENT
  Age: 53 Year
  Sex: Female
  Weight: 54 kg

DRUGS (13)
  1. EGG PHOSPHOLIPIDS\GLYCERIN\MEDIUM-CHAIN TRIGLYCERIDES\SOYBEAN OIL [Suspect]
     Active Substance: EGG PHOSPHOLIPIDS\GLYCERIN\MEDIUM-CHAIN TRIGLYCERIDES\SOYBEAN OIL
     Indication: Intestinal obstruction
     Dosage: FORM OF ADMINISTRATION: INJECTION
     Route: 041
     Dates: start: 20241112, end: 20241115
  2. ADDAMEL N [Suspect]
     Active Substance: CHROMIC CHLORIDE\CUPROUS CHLORIDE\FERRIC CHLORIDE\MANGANESE CHLORIDE\POTASSIUM IODIDE\SODIUM FLUORID
     Indication: Intestinal obstruction
     Dosage: FOA: INJECTION
     Route: 041
     Dates: start: 20241112, end: 20241115
  3. GLYCOPHOS [Suspect]
     Active Substance: SODIUM GLYCEROPHOSPHATE ANHYDROUS
     Indication: Intestinal obstruction
     Dosage: FOA: INJECTION
     Route: 041
     Dates: start: 20241112, end: 20241115
  4. AMINO ACIDS, SOURCE UNSPECIFIED [Suspect]
     Active Substance: AMINO ACIDS, SOURCE UNSPECIFIED
     Indication: Intestinal obstruction
     Dosage: FOA: INJECTION
     Route: 041
     Dates: start: 20241112, end: 20241115
  5. ERGOCALCIFEROL\PHYTONADIONE\RETINOL\TOCOPHEROL [Suspect]
     Active Substance: ERGOCALCIFEROL\PHYTONADIONE\RETINOL\TOCOPHEROL
     Indication: Intestinal obstruction
     Dosage: FOA: INJECTION
     Route: 041
     Dates: start: 20241112, end: 20241115
  6. POTASSIUM CHLORIDE [Suspect]
     Active Substance: POTASSIUM CHLORIDE
     Indication: Intestinal obstruction
     Dosage: FOA: INJECTION
     Route: 041
     Dates: start: 20241112, end: 20241115
  7. CALCIUM GLUCONATE [Suspect]
     Active Substance: CALCIUM GLUCONATE
     Indication: Intestinal obstruction
     Dosage: FOA: INJECTION
     Route: 041
     Dates: start: 20241112, end: 20241115
  8. CALCIUM GLUCONATE [Suspect]
     Active Substance: CALCIUM GLUCONATE
     Route: 041
     Dates: start: 20241118
  9. VITAMINS [Suspect]
     Active Substance: VITAMINS
     Indication: Intestinal obstruction
     Dosage: FOA: INJECTION
     Route: 041
     Dates: start: 20241112, end: 20241115
  10. SODIUM CHLORIDE [Suspect]
     Active Substance: SODIUM CHLORIDE
     Indication: Intestinal obstruction
     Dosage: FOA: INJECTION
     Route: 041
     Dates: start: 20241112, end: 20241115
  11. INSULIN NOS [Suspect]
     Active Substance: INSULIN NOS
     Indication: Intestinal obstruction
     Dosage: FOA: INJECTION
     Route: 041
     Dates: start: 20241112, end: 20241115
  12. METHYLPREDNISOLONE SODIUM SUCCINATE [Concomitant]
     Active Substance: METHYLPREDNISOLONE SODIUM SUCCINATE
     Indication: Intestinal obstruction
     Route: 041
     Dates: start: 20241118
  13. VITAMIN C [Concomitant]
     Active Substance: ASCORBIC ACID
     Indication: Intestinal obstruction
     Route: 041
     Dates: start: 20241118

REACTIONS (3)
  - Rash [Recovering/Resolving]
  - Pruritus [Recovering/Resolving]
  - Urticaria [Recovering/Resolving]

NARRATIVE: CASE EVENT DATE: 20241113
